FAERS Safety Report 9279272 (Version 2)
Quarter: 2013Q2

REPORT INFORMATION
  Report Type: Spontaneous
  Country: PL (occurrence: PL)
  Receive Date: 20130508
  Receipt Date: 20130528
  Transmission Date: 20140414
  Serious: Yes (Death)
  Sender: FDA-Public Use
  Company Number: PL-BAXTER-2013BAX015904

PATIENT
  Age: 4 Year
  Sex: Male

DRUGS (2)
  1. DIANEAL PD4 (GLUKOZA 1,36%) ZESTAW DO DIALIZY OTRZEWNOWEJ [Suspect]
     Indication: PERITONEAL DIALYSIS
     Route: 033
  2. DIANEAL PD4 (GLUKOZA 1,36%) ZESTAW DO DIALIZY OTRZEWNOWEJ [Suspect]
     Indication: PERITONEAL DIALYSIS
     Route: 033

REACTIONS (3)
  - Pneumonia [Fatal]
  - Respiratory failure [Fatal]
  - Respiratory tract infection [Fatal]
